FAERS Safety Report 22176566 (Version 1)
Quarter: 2023Q2

REPORT INFORMATION
  Report Type: Other
  Country: None (occurrence: US)
  Receive Date: 20230405
  Receipt Date: 20230405
  Transmission Date: 20230721
  Serious: Yes (Life-Threatening, Hospitalization)
  Sender: FDA-Public Use
  Company Number: US-B.Braun Medical Inc.-2139918

PATIENT
  Age: 62 Year
  Sex: Female

DRUGS (2)
  1. EPINEPHRINE\LIDOCAINE HYDROCHLORIDE [Suspect]
     Active Substance: EPINEPHRINE\LIDOCAINE HYDROCHLORIDE
     Indication: Skin cosmetic procedure
  2. EPINEPHRINE [Suspect]
     Active Substance: EPINEPHRINE

REACTIONS (2)
  - Stress cardiomyopathy [Recovering/Resolving]
  - Ejection fraction decreased [Recovering/Resolving]
